FAERS Safety Report 20474343 (Version 1)
Quarter: 2022Q1

REPORT INFORMATION
  Report Type: Spontaneous
  Country: US (occurrence: US)
  Receive Date: 20220215
  Receipt Date: 20220215
  Transmission Date: 20220423
  Serious: Yes (Death, Other)
  Sender: FDA-Public Use
  Company Number: US-GLAXOSMITHKLINE-US2022025468

PATIENT
  Age: 84 Year
  Sex: Male

DRUGS (1)
  1. SORIATANE [Suspect]
     Active Substance: ACITRETIN
     Indication: Product used for unknown indication
     Dosage: 10 MG, 30 CAP
     Dates: start: 20210418, end: 20210627

REACTIONS (1)
  - Death [Fatal]

NARRATIVE: CASE EVENT DATE: 20210627
